FAERS Safety Report 16703557 (Version 1)
Quarter: 2019Q3

REPORT INFORMATION
  Report Type: Spontaneous
  Country: GB (occurrence: GB)
  Receive Date: 20190814
  Receipt Date: 20190814
  Transmission Date: 20191004
  Serious: Yes (Hospitalization)
  Sender: FDA-Public Use
  Company Number: PHHY2019GB185698

PATIENT
  Age: 26 Year
  Sex: Female

DRUGS (1)
  1. AMLODIPINE [Suspect]
     Active Substance: AMLODIPINE BESYLATE
     Indication: PRODUCT USED FOR UNKNOWN INDICATION
     Dosage: 10 MG, UNK
     Route: 065

REACTIONS (8)
  - Thrombocytopenia [Unknown]
  - Oedema peripheral [Unknown]
  - Product dispensing error [Unknown]
  - Dizziness [Unknown]
  - Joint swelling [Unknown]
  - Product label on wrong product [Unknown]
  - Rash generalised [Unknown]
  - Renal impairment [Unknown]

NARRATIVE: CASE EVENT DATE: 201907
